FAERS Safety Report 8573052-5 (Version None)
Quarter: 2012Q3

REPORT INFORMATION
  Report Type: 
  Country: None (occurrence: None)
  Receive Date: 20120806
  Receipt Date: 20120801
  Transmission Date: 20120928
  Serious: Yes (Hospitalization, Other)
  Sender: FDA-Public Use
  Company Number: US-ROCHE-1073124

PATIENT
  Sex: Female
  Weight: 60.382 kg

DRUGS (6)
  1. VENTOLIN [Concomitant]
  2. OMALIZUMAB [Suspect]
     Dates: start: 20111001
  3. ALBUTEROL [Concomitant]
  4. SINGULAIR [Concomitant]
  5. FLUTICASONE PROPIONATE [Concomitant]
  6. OMALIZUMAB [Suspect]
     Indication: ASTHMA
     Route: 058
     Dates: start: 20110920

REACTIONS (1)
  - CEREBROVASCULAR ACCIDENT [None]
